FAERS Safety Report 15707241 (Version 1)
Quarter: 2018Q4

REPORT INFORMATION
  Report Type: Report from Study
  Country: None (occurrence: US)
  Receive Date: 20181210
  Receipt Date: 20181210
  Transmission Date: 20190205
  Serious: Yes (Other)
  Sender: FDA-Public Use
  Company Number: US-ABBVIE-18S-163-2583194-00

PATIENT
  Sex: Female

DRUGS (1)
  1. CREON [Suspect]
     Active Substance: PANCRELIPASE AMYLASE\PANCRELIPASE LIPASE\PANCRELIPASE PROTEASE
     Indication: PRODUCT USED FOR UNKNOWN INDICATION
     Route: 048

REACTIONS (18)
  - Arthralgia [Unknown]
  - Hiatus hernia [Unknown]
  - Trigger finger [Unknown]
  - Hysterectomy [Unknown]
  - Pancreatitis [Unknown]
  - Coronary arterial stent insertion [Unknown]
  - Cyst [Unknown]
  - Laryngeal polyp [Unknown]
  - Trigger finger [Unknown]
  - Knee arthroplasty [Unknown]
  - Medical device implantation [Unknown]
  - Chronic obstructive pulmonary disease [Unknown]
  - Colitis microscopic [Unknown]
  - Colitis [Unknown]
  - Foot deformity [Unknown]
  - Foot operation [Unknown]
  - Herpes zoster [Unknown]
  - Bone operation [Unknown]

NARRATIVE: CASE EVENT DATE: 1965
